FAERS Safety Report 16934161 (Version 1)
Quarter: 2019Q4

REPORT INFORMATION
  Report Type: Spontaneous
  Country: US (occurrence: US)
  Receive Date: 20191017
  Receipt Date: 20191017
  Transmission Date: 20200122
  Serious: No
  Sender: FDA-Public Use
  Company Number: None

PATIENT
  Age: 58 Year
  Sex: Male
  Weight: 72 kg

DRUGS (8)
  1. BUPROPION. [Concomitant]
     Active Substance: BUPROPION
  2. PRAVASTATIN. [Concomitant]
     Active Substance: PRAVASTATIN
  3. IC DOXYCYCLINE HYCLATE 100MG CAP [Suspect]
     Active Substance: DOXYCYCLINE HYCLATE
     Indication: CELLULITIS
     Dosage: ?          QUANTITY:1 TABLET(S);?
     Route: 048
     Dates: start: 20191014
  4. MIRTAZAPINE. [Concomitant]
     Active Substance: MIRTAZAPINE
  5. VITAMIN B COMPLEX [Concomitant]
     Active Substance: CYANOCOBALAMIN\DEXPANTHENOL\NIACINAMIDE\PYRIDOXINE HYDROCHLORIDE\RIBOFLAVIN 5^-PHOSPHATE SODIUM\THIAMINE HYDROCHLORIDE\VITAMIN B COMPLEX
  6. CLONAZEPAM. [Concomitant]
     Active Substance: CLONAZEPAM
  7. TURMERIC/CURCUMIN [Concomitant]
  8. DULOXETINE. [Concomitant]
     Active Substance: DULOXETINE

REACTIONS (2)
  - Suicidal ideation [None]
  - Drug interaction [None]

NARRATIVE: CASE EVENT DATE: 20191017
